FAERS Safety Report 9197578 (Version 1)
Quarter: 2013Q1

REPORT INFORMATION
  Report Type: Spontaneous
  Country: US (occurrence: US)
  Receive Date: 20130328
  Receipt Date: 20130328
  Transmission Date: 20140127
  Serious: No
  Sender: FDA-Public Use
  Company Number: US-TEVA-390285USA

PATIENT
  Sex: Female
  Weight: 53.57 kg

DRUGS (2)
  1. PROAIR HFA [Suspect]
     Indication: ASTHMA
     Dosage: 270 MICROGRAM DAILY; AS NEEDED
     Route: 055
     Dates: start: 2008
  2. ADVAIR [Concomitant]
     Indication: ASTHMA
     Dosage: 1 PUFF AS NEEDED
     Route: 055

REACTIONS (2)
  - Tongue injury [Not Recovered/Not Resolved]
  - Glossodynia [Not Recovered/Not Resolved]
